FAERS Safety Report 8157018-5 (Version None)
Quarter: 2012Q1

REPORT INFORMATION
  Report Type: 
  Country: None (occurrence: None)
  Receive Date: 20120222
  Receipt Date: 20120213
  Transmission Date: 20120608
  Serious: Yes (Hospitalization)
  Sender: FDA-Public Use
  Company Number: PHHY2012IT012237

PATIENT
  Age: 77 Year
  Sex: Male

DRUGS (2)
  1. CARBIDOPA AND LEVODOPA [Suspect]
     Dosage: 300 MG, UNK
  2. CARBIDOPA AND LEVODOPA [Suspect]
     Indication: PARKINSON'S DISEASE
     Dosage: 100 MG, TID

REACTIONS (11)
  - LEUKOENCEPHALOPATHY [None]
  - AGITATION [None]
  - RESPIRATORY DISORDER [None]
  - CEREBRAL ATROPHY [None]
  - RESPIRATION ABNORMAL [None]
  - IRRITABILITY [None]
  - HALLUCINATION, VISUAL [None]
  - MUSCLE RIGIDITY [None]
  - DYSPHONIA [None]
  - CONFUSIONAL STATE [None]
  - BRADYKINESIA [None]
